FAERS Safety Report 5177429-X (Version None)
Quarter: 2006Q4

REPORT INFORMATION
  Report Type: 
  Country: None (occurrence: None)
  Receive Date: 20061218
  Receipt Date: 20061019
  Transmission Date: 20070319
  Serious: Yes (Hospitalization)
  Sender: FDA-Public Use
  Company Number: BEWYE279819OCT06

PATIENT
  Age: 59 Year
  Sex: Female

DRUGS (5)
  1. ENBREL [Suspect]
     Indication: RHEUMATOID ARTHRITIS
     Route: 058
     Dates: start: 20060424, end: 20061005
  2. LEDERTREXATE [Suspect]
     Route: 048
     Dates: start: 20040305, end: 20061006
  3. ARAVA [Concomitant]
     Route: 065
     Dates: start: 20050114
  4. FOLIC ACID [Concomitant]
     Route: 065
     Dates: start: 20000204
  5. PREDNISOLONE [Concomitant]
     Route: 065
     Dates: start: 20060113

REACTIONS (2)
  - HIP ARTHROPLASTY [None]
  - SEPSIS [None]
